FAERS Safety Report 7958407-1 (Version None)
Quarter: 2011Q4

REPORT INFORMATION
  Report Type: 
  Country: None (occurrence: None)
  Receive Date: 20111205
  Receipt Date: 20111201
  Transmission Date: 20120403
  Serious: Yes (Other)
  Sender: FDA-Public Use
  Company Number: IT-MERCK-1111ITA00015

PATIENT
  Age: 65 Year
  Sex: Male

DRUGS (6)
  1. ENALAPRIL MALEATE AND HYDROCHLOROTHIAZIDE [Concomitant]
     Route: 065
  2. ZOCOR [Suspect]
     Indication: DYSLIPIDAEMIA
     Route: 048
     Dates: start: 20050218, end: 20110616
  3. ASPIRIN [Concomitant]
     Route: 065
  4. VERAPAMIL HYDROCHLORIDE [Concomitant]
     Route: 048
  5. DOXAZOSIN MESYLATE [Concomitant]
     Route: 065
  6. CANDESARTAN CILEXETIL [Suspect]
     Indication: HYPERTENSION
     Route: 048
     Dates: start: 20060309, end: 20110616

REACTIONS (2)
  - BLOOD CREATINE PHOSPHOKINASE INCREASED [None]
  - GLOMERULAR FILTRATION RATE DECREASED [None]
